FAERS Safety Report 4714270-3 (Version None)
Quarter: 2005Q2

REPORT INFORMATION
  Report Type: 
  Country: None (occurrence: None)
  Receive Date: 20050630
  Receipt Date: 20041104
  Transmission Date: 20051028
  Serious: Yes (Hospitalization)
  Sender: FDA-Public Use
  Company Number: 385651

PATIENT
  Age: 52 Year
  Sex: Female

DRUGS (7)
  1. KLONOPIN [Suspect]
     Dosage: 2.25 MG DAILY ORAL
     Route: 048
     Dates: start: 20040915
  2. PROVIGIL [Suspect]
     Indication: FATIGUE
     Dosage: 50 MG 1 PER ONE DOSE ORAL
     Route: 048
     Dates: start: 20020315, end: 20040915
  3. NEURONTIN [Suspect]
     Dosage: 1200 MG DAILY ORAL
     Route: 048
     Dates: start: 20040915
  4. ACIPHEX [Suspect]
     Indication: GASTROOESOPHAGEAL REFLUX DISEASE
     Dosage: 60 MG DAILY ORAL
     Route: 048
     Dates: start: 20040915
  5. HYDROCHLOROTHIAZIDE [Suspect]
     Indication: POLYURIA
     Dosage: 100 MG DAILY ORAL
     Route: 048
     Dates: start: 20040915
  6. DORYX [Suspect]
     Dosage: 100 MG DAILY ORAL
     Route: 048
     Dates: start: 20040915
  7. LEXAPRO [Suspect]
     Indication: DEPRESSION
     Dosage: 10 MG DAILY ORAL
     Route: 048
     Dates: start: 20040915

REACTIONS (8)
  - BALANCE DISORDER [None]
  - CHILLS [None]
  - DISORIENTATION [None]
  - HYPOTENSION [None]
  - MYALGIA [None]
  - NAUSEA [None]
  - PYREXIA [None]
  - VOMITING [None]
